FAERS Safety Report 9575704 (Version 1)
Quarter: 2013Q4

REPORT INFORMATION
  Report Type: Spontaneous
  Country: US (occurrence: US)
  Receive Date: 20131001
  Receipt Date: 20131001
  Transmission Date: 20140711
  Serious: No
  Sender: FDA-Public Use
  Company Number: US-AMGEN-USASP2013000032

PATIENT
  Age: 54 Year
  Sex: 0
  Weight: 136.5 kg

DRUGS (14)
  1. ENBREL [Suspect]
     Indication: PSORIATIC ARTHROPATHY
     Dosage: 50 MG, QWK
     Dates: start: 20121217
  2. ALLEGRA [Concomitant]
     Dosage: UNK
  3. BENICAR [Concomitant]
     Dosage: UNK
  4. FOLIC ACID [Concomitant]
     Dosage: UNK
  5. HYDROCHLOROTHIAZIDE [Concomitant]
     Dosage: UNK
  6. JANUVIA [Concomitant]
     Dosage: UNK
  7. LEXAPRO [Concomitant]
     Dosage: UNK
  8. METFORMIN                          /00082702/ [Concomitant]
     Dosage: UNK
  9. METHOTREXATE [Concomitant]
     Dosage: UNK
  10. PROTONIX [Concomitant]
     Dosage: UNK
  11. RAMIPRIL [Concomitant]
     Dosage: UNK
  12. SIMVASTATIN [Concomitant]
     Dosage: UNK
  13. SINGULAIR [Concomitant]
     Dosage: UNK
  14. BENADRYL                           /00000402/ [Concomitant]
     Dosage: UNK

REACTIONS (2)
  - Rash [Not Recovered/Not Resolved]
  - Arthralgia [Not Recovered/Not Resolved]
